FAERS Safety Report 9148735 (Version 3)
Quarter: 2013Q2

REPORT INFORMATION
  Report Type: Spontaneous
  Country: CA (occurrence: CA)
  Receive Date: 20130308
  Receipt Date: 20130510
  Transmission Date: 20140414
  Serious: Yes (Other)
  Sender: FDA-Public Use
  Company Number: CA-AMGEN-CANSP2013013770

PATIENT
  Age: 21 Month
  Sex: Female
  Weight: 13.6 kg

DRUGS (10)
  1. ARANESP [Suspect]
     Indication: RENAL FAILURE
     Dosage: 10 MUG, Q2WK
     Route: 058
     Dates: start: 201212, end: 201302
  2. ACYCLOVIR /00587301/ [Suspect]
     Dosage: UNK
     Dates: start: 201302
  3. CELLCEPT                           /01275102/ [Concomitant]
  4. TACROLIMUS [Concomitant]
  5. VITAMIN D /00107901/ [Concomitant]
  6. SEPTRA [Concomitant]
  7. ENALAPRIL [Concomitant]
  8. SIROLIMUS [Concomitant]
     Indication: IMMUNOSUPPRESSION
     Dosage: UNK
     Dates: start: 201207, end: 201212
  9. PREDNISONE [Concomitant]
     Indication: IMMUNOSUPPRESSION
     Dosage: UNK
     Dates: start: 201207
  10. VALACYCLOVIR HCL [Concomitant]

REACTIONS (3)
  - Anaemia [Recovering/Resolving]
  - Reticulocytopenia [Recovering/Resolving]
  - Herpes simplex [Recovering/Resolving]
